FAERS Safety Report 9382813 (Version 2)
Quarter: 2013Q3

REPORT INFORMATION
  Report Type: Spontaneous
  Country: ES (occurrence: ES)
  Receive Date: 20130703
  Receipt Date: 20130717
  Transmission Date: 20140515
  Serious: Yes (Death)
  Sender: FDA-Public Use
  Company Number: ES-B.I. PHARMACEUTICALS,INC./RIDGEFIELD-2013-ES-00317ES

PATIENT
  Sex: Male

DRUGS (12)
  1. STILNOX [Concomitant]
     Dosage: 10 MG
     Route: 048
     Dates: start: 20130419
  2. PRADAXA [Suspect]
     Indication: ATRIAL FIBRILLATION
     Dosage: 220 MG
     Route: 048
     Dates: start: 20130125
  3. TRAMADOL [Concomitant]
     Dosage: 100 MG
     Route: 048
     Dates: start: 20130419
  4. ACOVIL [Concomitant]
     Dosage: 5 MG
     Route: 048
     Dates: start: 20110914
  5. ADIRO [Concomitant]
     Dosage: 100 MG
     Route: 048
     Dates: start: 20090914
  6. CARDYL [Concomitant]
     Dosage: 20 MG
     Route: 048
     Dates: start: 20130215
  7. FUROSEMIDA [Concomitant]
     Dosage: 80 MG
     Route: 048
     Dates: start: 20130215
  8. PANTOPRAZOL [Concomitant]
     Dosage: 40 MG
     Route: 048
     Dates: start: 20110914
  9. ELORGAN [Concomitant]
     Dosage: 120 MG
     Route: 048
     Dates: start: 20130419
  10. EMCONCOR COR [Concomitant]
     Dosage: 1.25 MG
     Route: 048
     Dates: start: 20110914
  11. MINITRAN [Concomitant]
     Dosage: 15 MG
     Route: 062
     Dates: start: 20130215
  12. NOVOMIX FLEXPEN [Concomitant]
     Dosage: 28 U
     Route: 058
     Dates: start: 20110914

REACTIONS (1)
  - Haemoptysis [Fatal]
